FAERS Safety Report 5207630-8 (Version None)
Quarter: 2007Q1

REPORT INFORMATION
  Report Type: 
  Country: None (occurrence: None)
  Receive Date: 20070112
  Receipt Date: 20070102
  Transmission Date: 20070707
  Serious: Yes (Hospitalization, Other)
  Sender: FDA-Public Use
  Company Number: US-PFIZER INC-2006119941

PATIENT
  Sex: Male

DRUGS (10)
  1. NEURONTIN [Suspect]
     Indication: BIPOLAR DISORDER
  2. ATIVAN [Suspect]
  3. DEPAKOTE [Concomitant]
     Indication: BIPOLAR DISORDER
     Route: 048
  4. DEPAKOTE [Concomitant]
     Indication: BIPOLAR DISORDER
  5. LITHIUM CARBONATE [Concomitant]
     Indication: DEPRESSION
  6. PAXIL [Concomitant]
     Indication: DEPRESSION
  7. PROPRANOLOL [Concomitant]
  8. ZARONTIN [Concomitant]
  9. GEODON [Concomitant]
     Dosage: TEXT:80MG, QHS
  10. PERPHENAZINE [Concomitant]
     Route: 048

REACTIONS (4)
  - DRUG INEFFECTIVE [None]
  - INTENTIONAL SELF-INJURY [None]
  - OVERDOSE [None]
  - SUICIDE ATTEMPT [None]
